FAERS Safety Report 16790782 (Version 2)
Quarter: 2019Q4

REPORT INFORMATION
  Report Type: Spontaneous
  Country: US (occurrence: US)
  Receive Date: 20190910
  Receipt Date: 20191021
  Transmission Date: 20200122
  Serious: Yes (Hospitalization)
  Sender: FDA-Public Use
  Company Number: US-PFIZER INC-2019391005

PATIENT
  Age: 79 Year
  Sex: Female
  Weight: 114 kg

DRUGS (1)
  1. IBRANCE [Suspect]
     Active Substance: PALBOCICLIB
     Indication: BREAST CANCER RECURRENT
     Dosage: 125 MG, UNK

REACTIONS (6)
  - Oral mucosal blistering [Not Recovered/Not Resolved]
  - Madarosis [Not Recovered/Not Resolved]
  - Rash [Unknown]
  - Anaemia [Not Recovered/Not Resolved]
  - Memory impairment [Not Recovered/Not Resolved]
  - Alopecia [Not Recovered/Not Resolved]
